FAERS Safety Report 20003351 (Version 2)
Quarter: 2021Q4

REPORT INFORMATION
  Report Type: Spontaneous
  Country: None (occurrence: US)
  Receive Date: 20211027
  Receipt Date: 20211104
  Transmission Date: 20220303
  Serious: No
  Sender: FDA-Public Use
  Company Number: US-MATRIXX INITIATIVES, INC.-2121071

PATIENT
  Age: 53 Year
  Sex: Female
  Weight: 79.091 kg

DRUGS (1)
  1. ZICAM EXTREME CONGESTION RELIEF (OXYMETAZOLINE HYDROCHLORIDE) [Suspect]
     Active Substance: OXYMETAZOLINE HYDROCHLORIDE
     Indication: Nasal congestion
     Route: 045
     Dates: start: 20211025, end: 20211025

REACTIONS (2)
  - Anosmia [Recovering/Resolving]
  - Dysgeusia [Recovering/Resolving]
